FAERS Safety Report 19279804 (Version 2)
Quarter: 2022Q3

REPORT INFORMATION
  Report Type: Spontaneous
  Country: US (occurrence: US)
  Receive Date: 20210520
  Receipt Date: 20220911
  Transmission Date: 20221027
  Serious: No
  Sender: FDA-Public Use
  Company Number: US-SA-SAC20210514000455

PATIENT
  Age: 54 Year
  Sex: Female

DRUGS (2)
  1. CEREZYME [Suspect]
     Active Substance: IMIGLUCERASE
     Indication: Gaucher^s disease
     Dosage: UNK
     Dates: start: 20180303
  2. CEREZYME [Suspect]
     Active Substance: IMIGLUCERASE
     Indication: Fabry^s disease

REACTIONS (1)
  - No adverse event [Unknown]
